FAERS Safety Report 5694174-2 (Version None)
Quarter: 2008Q2

REPORT INFORMATION
  Report Type: 
  Country: None (occurrence: None)
  Receive Date: 20080402
  Receipt Date: 20080320
  Transmission Date: 20081010
  Serious: Yes (Death, Hospitalization)
  Sender: FDA-Public Use
  Company Number: M7002-00632-CLI-US

PATIENT
  Age: 40 Year
  Sex: Male
  Weight: 82 kg

DRUGS (6)
  1. ONTAK [Suspect]
     Indication: LYMPHOMA
     Dosage: 1422 MCG, INTRAVENOUS INFUSION;   INTERMITTEN SINCE 14 JAN 2008
     Route: 042
     Dates: start: 20080114
  2. CYCLOPHOSPHAMIDE [Concomitant]
  3. DOXORUBIENE (DOXORUBICIN HYDROCHLORIDE) [Concomitant]
  4. VINCRISTINE [Concomitant]
  5. PREDNISONE TAB [Concomitant]
  6. NEULASTA [Concomitant]

REACTIONS (26)
  - ATRIAL FIBRILLATION [None]
  - BLOOD AMYLASE INCREASED [None]
  - BLOOD BICARBONATE DECREASED [None]
  - BLOOD CREATINE PHOSPHOKINASE INCREASED [None]
  - BLOOD LACTATE DEHYDROGENASE INCREASED [None]
  - CAPILLARY LEAK SYNDROME [None]
  - CARDIAC ARREST [None]
  - DIZZINESS [None]
  - GENERALISED OEDEMA [None]
  - HAEMATOCRIT INCREASED [None]
  - HEPATIC CONGESTION [None]
  - INSOMNIA [None]
  - LIPASE INCREASED [None]
  - LYMPHOPENIA [None]
  - METABOLIC ACIDOSIS [None]
  - MYALGIA [None]
  - NEUTROPHILIA [None]
  - PAIN [None]
  - PLATELET COUNT DECREASED [None]
  - RENAL DISORDER [None]
  - SPLEEN CONGESTION [None]
  - UNRESPONSIVE TO STIMULI [None]
  - VENTRICULAR HYPERTROPHY [None]
  - VISCERAL CONGESTION [None]
  - VOMITING [None]
  - WEIGHT INCREASED [None]
